FAERS Safety Report 8164230-8 (Version None)
Quarter: 2012Q1

REPORT INFORMATION
  Report Type: 
  Country: None (occurrence: None)
  Receive Date: 20120224
  Receipt Date: 20111202
  Transmission Date: 20120608
  Serious: Yes (Hospitalization)
  Sender: FDA-Public Use
  Company Number: US-ASTRAZENECA-2011SE73566

PATIENT
  Age: 40 Year
  Sex: Male

DRUGS (3)
  1. NAPROXEN [Suspect]
     Indication: ARTHRITIS
     Route: 048
  2. NAPROXEN (ALEVE) [Suspect]
     Indication: ARTHRITIS
     Route: 048
  3. VIMOVO [Suspect]
     Indication: ARTHRITIS
     Dosage: 500MG/20MG EVERY MORNING
     Route: 048
     Dates: end: 20111130

REACTIONS (2)
  - HAEMOGLOBIN DECREASED [None]
  - GASTROINTESTINAL HAEMORRHAGE [None]
